FAERS Safety Report 14750194 (Version 2)
Quarter: 2018Q2

REPORT INFORMATION
  Report Type: Spontaneous
  Country: BR (occurrence: BR)
  Receive Date: 20180412
  Receipt Date: 20180427
  Transmission Date: 20180711
  Serious: Yes (Other)
  Sender: FDA-Public Use
  Company Number: BR-MERCK KGAA-2045611

PATIENT
  Age: 65 Year
  Sex: Female

DRUGS (2)
  1. NOVOTHYROX [Suspect]
     Active Substance: LEVOTHYROXINE SODIUM
     Indication: POST PROCEDURAL HYPOTHYROIDISM
  2. LEVOTHYROXINE SODIUM. [Suspect]
     Active Substance: LEVOTHYROXINE SODIUM
     Dates: end: 201709

REACTIONS (7)
  - Blood pressure decreased [Not Recovered/Not Resolved]
  - Tri-iodothyronine abnormal [Recovered/Resolved]
  - Arrhythmia [Recovered/Resolved]
  - Drug dispensing error [None]
  - Syncope [Recovered/Resolved]
  - Incorrect drug dosage form administered [Recovered/Resolved]
  - Balance disorder [Recovered/Resolved]

NARRATIVE: CASE EVENT DATE: 2017
